FAERS Safety Report 16148395 (Version 1)
Quarter: 2019Q2

REPORT INFORMATION
  Report Type: Spontaneous
  Country: PT (occurrence: PT)
  Receive Date: 20190402
  Receipt Date: 20190402
  Transmission Date: 20190711
  Serious: Yes (Disabling)
  Sender: FDA-Public Use
  Company Number: IND-PT-009507513-1903PRT012669

PATIENT
  Sex: Female

DRUGS (1)
  1. EXXIV 120 MG FILM-COATED TABLETS [Suspect]
     Active Substance: ETORICOXIB
     Indication: BACK PAIN
     Dosage: 120 MILLIGRAM, QD
     Route: 048
     Dates: start: 2016

REACTIONS (19)
  - Erythema of eyelid [Recovered/Resolved]
  - Rash [Recovered/Resolved]
  - Paraesthesia [Recovered/Resolved]
  - Swelling of eyelid [Recovered/Resolved]
  - Rash macular [Recovered/Resolved]
  - Lip injury [Recovered/Resolved]
  - Tongue blistering [Recovered/Resolved]
  - Eyelids pruritus [Recovered/Resolved]
  - Pain [Recovered/Resolved]
  - Eye swelling [Recovered/Resolved]
  - Oral mucosal blistering [Recovered/Resolved]
  - Eye pruritus [Recovered/Resolved]
  - Lip exfoliation [Recovered/Resolved]
  - Lip pruritus [Recovered/Resolved]
  - Lip swelling [Recovered/Resolved]
  - Skin lesion [Recovered/Resolved]
  - Oropharyngeal blistering [Recovered/Resolved]
  - Burning sensation [Recovered/Resolved]
  - Paraesthesia oral [Recovered/Resolved]

NARRATIVE: CASE EVENT DATE: 2016
